FAERS Safety Report 13931641 (Version 2)
Quarter: 2017Q3

REPORT INFORMATION
  Report Type: Spontaneous
  Country: JP (occurrence: JP)
  Receive Date: 20170904
  Receipt Date: 20170915
  Transmission Date: 20171127
  Serious: Yes (Other)
  Sender: FDA-Public Use
  Company Number: JP-009507513-1708JPN002978J

PATIENT
  Age: 83 Year
  Sex: Male

DRUGS (11)
  1. MUCOSTA [Concomitant]
     Active Substance: REBAMIPIDE
     Dosage: UNK
     Route: 048
  2. FEXOFENADINE HYDROCHLORIDE. [Concomitant]
     Active Substance: FEXOFENADINE HYDROCHLORIDE
     Dosage: UNK
     Route: 048
  3. PROPETO [Concomitant]
     Dosage: UNK
     Route: 061
  4. ZOLPIDEM TARTRATE. [Concomitant]
     Active Substance: ZOLPIDEM TARTRATE
     Dosage: UNK
     Route: 065
     Dates: start: 201705
  5. TSUMURA TOKIINSHI EXTRACT GRANULES FOR ETHICAL USE [Concomitant]
     Dosage: UNK
     Route: 048
  6. TSUMURA JUZENTAIHOTO EXTRACT GRANULES FOR ETHICAL USE [Concomitant]
     Dosage: UNK
     Route: 048
  7. CICLOSPORIN [Concomitant]
     Active Substance: CYCLOSPORINE
     Indication: ERYTHEMA MULTIFORME
     Dosage: 25 MG, TIW
     Route: 065
     Dates: start: 201704
  8. ANTEBATE [Concomitant]
     Active Substance: BETAMETHASONE DIPROPIONATE
     Dosage: UNK
     Route: 061
  9. CLENAFIN [Concomitant]
     Active Substance: EFINACONAZOLE
     Dosage: UNK
     Route: 061
  10. BELSOMRA [Suspect]
     Active Substance: SUVOREXANT
     Indication: INSOMNIA
     Dosage: 15 MG, UNK
     Route: 048
     Dates: start: 20170509, end: 20170909
  11. TALION OD [Concomitant]
     Active Substance: BEPOTASTINE BESILATE
     Dosage: UNK
     Route: 048

REACTIONS (1)
  - Erythema multiforme [Recovering/Resolving]

NARRATIVE: CASE EVENT DATE: 20170616
